FAERS Safety Report 24066556 (Version 3)
Quarter: 2024Q3

REPORT INFORMATION
  Report Type: Spontaneous
  Country: SA (occurrence: SA)
  Receive Date: 20240709
  Receipt Date: 20240816
  Transmission Date: 20241017
  Serious: Yes (Death, Hospitalization)
  Sender: BIOMARIN
  Company Number: SA-BIOMARINAP-SA-2024-159013

PATIENT

DRUGS (1)
  1. VIMIZIM [Suspect]
     Active Substance: ELOSULFASE ALFA
     Indication: Mucopolysaccharidosis IV
     Dosage: 60 MILLIGRAM, QW
     Route: 042
     Dates: start: 20240626

REACTIONS (4)
  - Death [Fatal]
  - Pneumonia [Unknown]
  - Hypoxia [Unknown]
  - Dyspnoea [Unknown]
